FAERS Safety Report 17057612 (Version 1)
Quarter: 2019Q4

REPORT INFORMATION
  Report Type: Spontaneous
  Country: ES (occurrence: ES)
  Receive Date: 20191121
  Receipt Date: 20191121
  Transmission Date: 20200122
  Serious: Yes (Hospitalization, Other)
  Sender: FDA-Public Use
  Company Number: ES-JUBILANT CADISTA PHARMACEUTICALS-2019JUB00429

PATIENT
  Age: 46 Year
  Sex: Male
  Weight: 91 kg

DRUGS (31)
  1. PREDNISONE. [Suspect]
     Active Substance: PREDNISONE
     Dosage: 10 MG, EVERY 48 HOURS (EVERY OTHER DAY)
     Route: 048
     Dates: start: 20180705, end: 20180705
  2. LEVOFLOXACINE [Concomitant]
     Active Substance: LEVOFLOXACIN
     Dosage: UNK
     Dates: start: 20180409, end: 20180619
  3. PREDNISONE. [Suspect]
     Active Substance: PREDNISONE
     Dosage: 10 MG, EVERY 48 HOURS (EVERY OTHER DAY)
     Route: 048
     Dates: start: 20180707, end: 20180707
  4. PREDNISONE. [Suspect]
     Active Substance: PREDNISONE
     Dosage: 10 MG, EVERY 48 HOURS (EVERY OTHER DAY)
     Route: 048
     Dates: start: 20180709, end: 20180709
  5. INCB39110 OR PLACEBO [Suspect]
     Active Substance: ITACITINIB
     Indication: ACUTE GRAFT VERSUS HOST DISEASE
     Dosage: 200 MG, 1X/DAY
     Route: 048
     Dates: start: 20180525
  6. ACFOL [Concomitant]
     Active Substance: FOLIC ACID
     Dosage: UNK
     Dates: start: 2017
  7. ACYCLOVIR. [Concomitant]
     Active Substance: ACYCLOVIR
     Dosage: UNK
     Dates: start: 20180403, end: 20180606
  8. CEFEPIME [Concomitant]
     Active Substance: CEFEPIME HYDROCHLORIDE
     Dosage: UNK
     Dates: start: 20180415, end: 20180427
  9. OMEPRAZOLE. [Concomitant]
     Active Substance: OMEPRAZOLE
     Dosage: UNK
     Dates: start: 20180517
  10. OLANZAPINA [Concomitant]
     Active Substance: OLANZAPINE
     Dosage: UNK
     Dates: start: 2017, end: 20180531
  11. PREDNISONE. [Suspect]
     Active Substance: PREDNISONE
     Dosage: 20 MG, 1X/DAY
     Route: 048
     Dates: start: 20180619, end: 20180625
  12. AZITHROMYCIN ANHYDROUS. [Concomitant]
     Active Substance: AZITHROMYCIN ANHYDROUS
     Dosage: UNK
     Dates: start: 20180417
  13. DULOXETINE. [Concomitant]
     Active Substance: DULOXETINE
     Dosage: UNK
     Dates: start: 2017
  14. BENZETACIL [Concomitant]
     Dosage: UNK
     Dates: start: 20180612
  15. ENALAPRIL [Concomitant]
     Active Substance: ENALAPRIL
     Dosage: UNK
     Dates: start: 20180517
  16. PREDNISONE. [Suspect]
     Active Substance: PREDNISONE
     Dosage: 5 MG, EVERY 48 HOURS (EVERY OTHER DAY)
     Route: 048
     Dates: start: 20180710, end: 20180710
  17. ONDANSETRON [Concomitant]
     Active Substance: ONDANSETRON
     Dosage: UNK
     Dates: start: 20180522
  18. PREDNISONE. [Suspect]
     Active Substance: PREDNISONE
     Indication: ACUTE GRAFT VERSUS HOST DISEASE
     Dosage: 80 MG, 2X/DAY
     Route: 048
     Dates: start: 20180525, end: 20180611
  19. PREDNISONE. [Suspect]
     Active Substance: PREDNISONE
     Dosage: 15 MG, EVERY 48 HOURS (EVERY OTHER DAY)
     Route: 048
     Dates: start: 20180629, end: 20180629
  20. PREDNISONE. [Suspect]
     Active Substance: PREDNISONE
     Dosage: 10 MG, 1X/DAY
     Route: 048
     Dates: start: 20180703, end: 20180703
  21. TACROLIMUS. [Concomitant]
     Active Substance: TACROLIMUS
  22. BECLOMETHASONE [Concomitant]
     Active Substance: BECLOMETHASONE
     Dosage: UNK
     Dates: start: 20180417
  23. NICOTINE. [Concomitant]
     Active Substance: NICOTINE
     Dosage: UNK
     Dates: start: 20180517
  24. PREDNISONE. [Suspect]
     Active Substance: PREDNISONE
     Dosage: 30 MG, 1X/DAY
     Route: 048
     Dates: start: 20180612, end: 20180618
  25. PREDNISONE. [Suspect]
     Active Substance: PREDNISONE
     Dosage: 20 MG, 1X/DAY
     Route: 048
     Dates: start: 20180626, end: 20180628
  26. G-CSF [Concomitant]
     Active Substance: GRANULOCYTE COLONY-STIMULATING FACTOR NOS
     Dosage: UNK
     Dates: start: 20180418, end: 20180428
  27. MAGNOGENE [Concomitant]
     Dosage: UNK
     Dates: start: 20180417
  28. MASTICAL D [Concomitant]
     Dosage: UNK
     Dates: start: 20180517
  29. PARACETAMOL [Concomitant]
     Active Substance: ACETAMINOPHEN
     Dosage: UNK
     Dates: start: 2017
  30. PREDNISONE. [Suspect]
     Active Substance: PREDNISONE
     Dosage: 15 MG, EVERY 48 HOURS (EVERY OTHER DAY)
     Route: 048
     Dates: start: 20180701, end: 20180701
  31. PENTAMIDINE [Concomitant]
     Active Substance: PENTAMIDINE
     Dosage: UNK
     Dates: start: 20180510

REACTIONS (3)
  - Blood triglycerides increased [Unknown]
  - Steroid diabetes [Recovered/Resolved]
  - Confusional state [Recovered/Resolved]

NARRATIVE: CASE EVENT DATE: 20180530
